FAERS Safety Report 22209008 (Version 3)
Quarter: 2023Q2

REPORT INFORMATION
  Report Type: Spontaneous
  Country: US (occurrence: US)
  Receive Date: 20230413
  Receipt Date: 20230427
  Transmission Date: 20230721
  Serious: Yes (Death)
  Sender: FDA-Public Use
  Company Number: US-PFIZER INC-202300150248

PATIENT
  Age: 80 Year
  Sex: Female

DRUGS (1)
  1. DOFETILIDE [Suspect]
     Active Substance: DOFETILIDE
     Indication: Atrial fibrillation
     Dosage: 500 UG

REACTIONS (11)
  - Cardiac failure congestive [Fatal]
  - Blood potassium increased [Fatal]
  - Oedema peripheral [Fatal]
  - Heart rate decreased [Fatal]
  - Blood pressure decreased [Fatal]
  - Oxygen consumption decreased [Fatal]
  - Renal failure [Fatal]
  - Pulmonary oedema [Fatal]
  - Pericardial effusion [Fatal]
  - Asphyxia [Fatal]
  - Drug ineffective [Unknown]
